FAERS Safety Report 23788155 (Version 2)
Quarter: 2024Q2

REPORT INFORMATION
  Report Type: Spontaneous
  Country: IT (occurrence: IT)
  Receive Date: 20240426
  Receipt Date: 20240510
  Transmission Date: 20240715
  Serious: Yes (Death, Hospitalization)
  Sender: FDA-Public Use
  Company Number: IT-ORG100013321-2024000414

PATIENT
  Age: 40 Year
  Sex: Male

DRUGS (7)
  1. METRONIDAZOLE [Suspect]
     Active Substance: METRONIDAZOLE
     Indication: Isosporiasis
     Dosage: UNK
     Route: 065
  2. SULFAMETHOXAZOLE\TRIMETHOPRIM [Suspect]
     Active Substance: SULFAMETHOXAZOLE\TRIMETHOPRIM
     Indication: Isosporiasis
     Dosage: 160/800G QID
     Route: 048
  3. SULFAMETHOXAZOLE\TRIMETHOPRIM [Suspect]
     Active Substance: SULFAMETHOXAZOLE\TRIMETHOPRIM
     Indication: Prophylaxis
     Dosage: 160/800G TID
     Route: 048
  4. SULFAMETHOXAZOLE\TRIMETHOPRIM [Suspect]
     Active Substance: SULFAMETHOXAZOLE\TRIMETHOPRIM
     Indication: Isosporiasis
     Dosage: UNK
     Route: 042
  5. SULFAMETHOXAZOLE\TRIMETHOPRIM [Suspect]
     Active Substance: SULFAMETHOXAZOLE\TRIMETHOPRIM
     Indication: Prophylaxis
  6. PYRIMETHAMINE [Suspect]
     Active Substance: PYRIMETHAMINE
     Indication: Isosporiasis
     Dosage: UNK
     Route: 065
  7. NITAZOXANIDE [Suspect]
     Active Substance: NITAZOXANIDE
     Indication: Isosporiasis
     Dosage: UNK
     Route: 065

REACTIONS (1)
  - Drug ineffective [Fatal]
